FAERS Safety Report 7043888-0 (Version None)
Quarter: 2010Q4

REPORT INFORMATION
  Report Type: 
  Country: None (occurrence: None)
  Receive Date: 20101013
  Receipt Date: 20101001
  Transmission Date: 20110411
  Serious: Yes (Hospitalization, Other)
  Sender: FDA-Public Use
  Company Number: PE-PFIZER INC-2010124784

PATIENT
  Age: 47 Year
  Sex: Female

DRUGS (4)
  1. LYRICA [Suspect]
     Indication: TENDONITIS
     Dosage: UNK
     Route: 048
     Dates: start: 20100910, end: 20100921
  2. METICORTEN [Suspect]
     Dosage: UNK
     Route: 048
     Dates: end: 20100921
  3. ESOMEPRAZOLE [Suspect]
     Dosage: UNK
     Dates: end: 20100921
  4. DURICEF [Suspect]
     Dosage: UNK
     Dates: end: 20100921

REACTIONS (3)
  - ABDOMINAL DISCOMFORT [None]
  - ABDOMINAL PAIN UPPER [None]
  - NAUSEA [None]
